FAERS Safety Report 5773212-2 (Version None)
Quarter: 2008Q2

REPORT INFORMATION
  Report Type: 
  Country: None (occurrence: None)
  Receive Date: 20080613
  Receipt Date: 20080613
  Transmission Date: 20081010
  Serious: Yes (Other)
  Sender: FDA-Public Use
  Company Number: None

PATIENT
  Sex: Female

DRUGS (1)
  1. TRIGLIDE [Suspect]
     Indication: HYPERTRIGLYCERIDAEMIA
     Dosage: 50MG
     Dates: start: 20080610, end: 20080611

REACTIONS (3)
  - LIP SWELLING [None]
  - PHARYNGOLARYNGEAL PAIN [None]
  - SWOLLEN TONGUE [None]
